FAERS Safety Report 10168096 (Version 1)
Quarter: 2014Q2

REPORT INFORMATION
  Report Type: Spontaneous
  Country: FR (occurrence: FR)
  Receive Date: 20140512
  Receipt Date: 20140512
  Transmission Date: 20141212
  Serious: Yes (Hospitalization)
  Sender: FDA-Public Use
  Company Number: FR-009507513-1405FRA003754

PATIENT
  Age: 56 Year
  Sex: Female

DRUGS (4)
  1. NOXAFIL [Suspect]
     Dosage: UNK
     Route: 048
     Dates: start: 20140407, end: 20140411
  2. EVOLTRA [Suspect]
     Indication: ACUTE LYMPHOCYTIC LEUKAEMIA
     Dosage: 55.5 MG, UNK
     Route: 042
     Dates: start: 20140408, end: 20140410
  3. INEXIUM [Suspect]
     Dosage: UNK
     Route: 048
     Dates: start: 20140407, end: 20140411
  4. TOPALGIC [Suspect]
     Dosage: UNK
     Route: 048
     Dates: start: 20140407, end: 20140411

REACTIONS (3)
  - Hepatocellular injury [Recovering/Resolving]
  - Aspartate aminotransferase increased [Recovered/Resolved]
  - Alanine aminotransferase increased [Recovering/Resolving]
